FAERS Safety Report 25141954 (Version 1)
Quarter: 2025Q2

REPORT INFORMATION
  Report Type: Spontaneous
  Country: US (occurrence: None)
  Receive Date: 20250331
  Receipt Date: 20250331
  Transmission Date: 20250717
  Serious: No
  Sender: FDA-CTU
  Company Number: None

PATIENT
  Age: 72 Year
  Sex: Female
  Weight: 82.35 kg

DRUGS (7)
  1. WEGOVY [Suspect]
     Active Substance: SEMAGLUTIDE
     Indication: Weight decreased
     Route: 058
     Dates: start: 20250301, end: 20250328
  2. ROSUVASTATIN [Concomitant]
     Active Substance: ROSUVASTATIN
  3. albuterol MDI, [Concomitant]
  4. Advair MVI, [Concomitant]
  5. CoQ10, [Concomitant]
  6. D, CA/Zinc/Mag, [Concomitant]
  7. STOOL SOFTENER (DOCUSATE) [Concomitant]
     Active Substance: DOCUSATE

REACTIONS (2)
  - Sensitive skin [None]
  - Neuralgia [None]

NARRATIVE: CASE EVENT DATE: 20250301
